FAERS Safety Report 8462064-8 (Version None)
Quarter: 2012Q2

REPORT INFORMATION
  Report Type: 
  Country: None (occurrence: None)
  Receive Date: 20120625
  Receipt Date: 20120619
  Transmission Date: 20120825
  Serious: Yes (Hospitalization, Other)
  Sender: FDA-Public Use
  Company Number: US-BAYER-2012-054490

PATIENT
  Age: 50 Year
  Sex: Female
  Weight: 70.295 kg

DRUGS (4)
  1. MAGNEVIST [Suspect]
     Indication: NUCLEAR MAGNETIC RESONANCE IMAGING ABDOMINAL
     Dosage: 20 ML, ONCE
     Route: 042
     Dates: start: 20120518, end: 20120518
  2. LOSARTAN POTASSIUM [Concomitant]
     Indication: HYPERTENSION
     Dosage: 100 MG, QD
     Dates: start: 20120101
  3. METHYLDOPA [Concomitant]
     Indication: HYPERTENSION
     Dosage: 500 MG, BID
     Dates: start: 20110101
  4. MAGNEVIST [Suspect]
     Indication: RENAL DISORDER

REACTIONS (3)
  - CONTRAST MEDIA REACTION [None]
  - PRURITUS GENERALISED [None]
  - FORMICATION [None]
